FAERS Safety Report 9189191 (Version 1)
Quarter: 2013Q1

REPORT INFORMATION
  Report Type: Spontaneous
  Country: US (occurrence: None)
  Receive Date: 20130325
  Receipt Date: 20130325
  Transmission Date: 20140127
  Serious: Yes (Death, Life-Threatening, Hospitalization)
  Sender: FDA-Public Use
  Company Number: None

PATIENT
  Age: 58 Year
  Sex: Female
  Weight: 143 kg

DRUGS (2)
  1. EXEMASTANE [Suspect]
     Indication: METASTATIC NEOPLASM
  2. AMOXICILLIN [Suspect]
     Indication: BACTERAEMIA

REACTIONS (17)
  - Nausea [None]
  - Vomiting [None]
  - Streptococcus test positive [None]
  - Asthenia [None]
  - Oedema peripheral [None]
  - Dyspnoea exertional [None]
  - Dizziness [None]
  - Jaundice cholestatic [None]
  - Liver injury [None]
  - Idiosyncratic drug reaction [None]
  - Hepatotoxicity [None]
  - Sedation [None]
  - Terminal state [None]
  - Aspartate aminotransferase increased [None]
  - Alanine aminotransferase increased [None]
  - Blood bilirubin increased [None]
  - Blood alkaline phosphatase increased [None]
